FAERS Safety Report 6168298-X (Version None)
Quarter: 2009Q2

REPORT INFORMATION
  Report Type: 
  Country: None (occurrence: None)
  Receive Date: 20090424
  Receipt Date: 20090424
  Transmission Date: 20091009
  Serious: Yes (Other)
  Sender: FDA-Public Use
  Company Number: None

PATIENT
  Age: 73 Year
  Sex: Female

DRUGS (1)
  1. DIGOXIN [Suspect]
     Dosage: ONE T DAILY PO
     Route: 048
     Dates: start: 20081213, end: 20090420

REACTIONS (3)
  - FATIGUE [None]
  - NAUSEA [None]
  - PRODUCT QUALITY ISSUE [None]
